FAERS Safety Report 7725700-7 (Version None)
Quarter: 2011Q3

REPORT INFORMATION
  Report Type: 
  Country: None (occurrence: None)
  Receive Date: 20110902
  Receipt Date: 20110830
  Transmission Date: 20111222
  Serious: Yes (Death, Hospitalization)
  Sender: FDA-Public Use
  Company Number: PHHY2011CR77031

PATIENT
  Age: 78 Year
  Sex: Male

DRUGS (5)
  1. EXELON [Suspect]
     Indication: DEMENTIA ALZHEIMER'S TYPE
     Dosage: 4.6 MG, 1 PATCH
     Route: 062
     Dates: start: 20100401
  2. SOMAZINA [Concomitant]
     Dosage: UNK UKN, UNK
  3. ATENOLOL [Concomitant]
     Dosage: UNK UKN, UNK
  4. EXELON [Suspect]
     Dosage: 9.5 MG, 1 PATCH PER DAY
     Route: 062
  5. GLYBURIDE [Concomitant]
     Dosage: UNK UKN, UNK

REACTIONS (6)
  - PYREXIA [None]
  - GENERAL PHYSICAL HEALTH DETERIORATION [None]
  - DEATH [None]
  - DECUBITUS ULCER [None]
  - ISCHAEMIC STROKE [None]
  - DIARRHOEA [None]
